FAERS Safety Report 8024943-5 (Version None)
Quarter: 2012Q1

REPORT INFORMATION
  Report Type: 
  Country: None (occurrence: None)
  Receive Date: 20120105
  Receipt Date: 20120103
  Transmission Date: 20120608
  Serious: Yes (Hospitalization)
  Sender: FDA-Public Use
  Company Number: PHHO2010DE17998

PATIENT
  Sex: Female
  Weight: 72 kg

DRUGS (2)
  1. GILENYA [Suspect]
     Indication: MULTIPLE SCLEROSIS
     Dosage: 0.5MG
     Route: 048
     Dates: start: 20101014
  2. METHYLPREDNISOLONE [Suspect]
     Dosage: UNK
     Dates: start: 20101103, end: 20101107

REACTIONS (2)
  - MULTIPLE SCLEROSIS RELAPSE [None]
  - SYNCOPE [None]
